FAERS Safety Report 25508533 (Version 2)
Quarter: 2025Q4

REPORT INFORMATION
  Report Type: Report from Study
  Country: IL (occurrence: IL)
  Receive Date: 20250703
  Receipt Date: 20251208
  Transmission Date: 20260119
  Serious: Yes (Hospitalization)
  Sender: ABBVIE
  Company Number: IL-ABBVIE-6349965

PATIENT
  Age: 60 Year
  Sex: Male
  Weight: 105 kg

DRUGS (11)
  1. FOSCARBIDOPA\FOSLEVODOPA [Suspect]
     Active Substance: FOSCARBIDOPA\FOSLEVODOPA
     Indication: Parkinson^s disease
     Dosage: LOADING DOSE DRUG: 0.8 ML?CONTINUOUS RATE PUMP SETTING BASE 0.45 ML/H?CONTINUOUS RATE PUMP SETTIN...
     Route: 058
     Dates: start: 20240805, end: 20240814
  2. FOSCARBIDOPA\FOSLEVODOPA [Suspect]
     Active Substance: FOSCARBIDOPA\FOSLEVODOPA
     Dosage: LOADING DOSE DRUG: 0.8 ML?CONTINUOUS RATE PUMP SETTING BASE 0.47 ML/H?CONTINUOUS RATE PUMP SETTIN...
     Route: 058
     Dates: start: 20240814, end: 20240828
  3. FOSCARBIDOPA\FOSLEVODOPA [Suspect]
     Active Substance: FOSCARBIDOPA\FOSLEVODOPA
     Dosage: LOADING DOSE DRUG: 0.8 ML?CONTINUOUS RATE PUMP SETTING BASE 0.5 ML/H?CONTINUOUS RATE PUMP SETTING...
     Route: 058
     Dates: start: 20240828, end: 20241112
  4. FOSCARBIDOPA\FOSLEVODOPA [Suspect]
     Active Substance: FOSCARBIDOPA\FOSLEVODOPA
     Dosage: LOADING DOSE DRUG: 0.8 ML?CONTINUOUS RATE PUMP SETTING BASE 0.54 ML/H?CONTINUOUS RATE PUMP SETTIN...
     Route: 058
     Dates: start: 20241112
  5. XALATAN [Concomitant]
     Active Substance: LATANOPROST
     Indication: Glaucoma
     Dosage: DOSE 1 DROP?EYE DROPS
     Route: 031
     Dates: start: 20200607
  6. VENLAFAXINE HYDROCHLORIDE [Concomitant]
     Active Substance: VENLAFAXINE HYDROCHLORIDE
     Indication: Depression
     Route: 048
     Dates: start: 20210114
  7. ENOXAPARIN [Concomitant]
     Active Substance: ENOXAPARIN
     Indication: Prophylaxis
     Route: 048
     Dates: start: 20240914
  8. BETAMETHASONE\GENTAMICIN [Concomitant]
     Active Substance: BETAMETHASONE\GENTAMICIN
     Indication: Inflammation
     Dosage: TIME INTERVAL: AS NECESSARY
     Route: 003
     Dates: start: 20240901
  9. METFORMIN HYDROCHLORIDE [Concomitant]
     Active Substance: METFORMIN HYDROCHLORIDE
     Indication: Diabetes mellitus
     Route: 048
     Dates: start: 20250101
  10. CEPHALEXIN [Concomitant]
     Active Substance: CEPHALEXIN
     Indication: Subcutaneous abscess
     Dosage: EVERY NIGHT
     Route: 048
     Dates: start: 20250203
  11. SINEMET CR [Concomitant]
     Active Substance: CARBIDOPA\LEVODOPA
     Indication: Parkinson^s disease
     Dosage: TIME INTERVAL: 0.125 DAYS
     Route: 048
     Dates: start: 20190130

REACTIONS (1)
  - Spinal decompression [Recovered/Resolved]

NARRATIVE: CASE EVENT DATE: 20250627
